FAERS Safety Report 20961954 (Version 1)
Quarter: 2022Q2

REPORT INFORMATION
  Report Type: Spontaneous
  Country: US (occurrence: None)
  Receive Date: 20220614
  Receipt Date: 20220614
  Transmission Date: 20220721
  Serious: Yes (Life-Threatening, Hospitalization, Other)
  Sender: FDA-Public Use
  Company Number: None

PATIENT
  Age: 67 Year
  Sex: Male

DRUGS (5)
  1. CITALOPRAM [Suspect]
     Active Substance: CITALOPRAM HYDROBROMIDE
     Indication: Product used for unknown indication
     Dosage: FREQUENCY : DAILY;?
     Route: 048
     Dates: start: 20220208, end: 20220611
  2. SELEGILINE [Suspect]
     Active Substance: SELEGILINE
     Dosage: FREQUENCY : DAILY;?
     Route: 048
     Dates: start: 20220219
  3. CARBIDOPA\LEVODOPA [Concomitant]
     Active Substance: CARBIDOPA\LEVODOPA
  4. DONEPEZIL [Concomitant]
     Active Substance: DONEPEZIL
  5. MEMANTINE [Concomitant]
     Active Substance: MEMANTINE

REACTIONS (8)
  - Confusional state [None]
  - Loss of consciousness [None]
  - Reduced facial expression [None]
  - Hallucination [None]
  - Feeling cold [None]
  - Gait disturbance [None]
  - Musculoskeletal stiffness [None]
  - Abdominal discomfort [None]

NARRATIVE: CASE EVENT DATE: 20220310
